FAERS Safety Report 6595818-3 (Version None)
Quarter: 2010Q1

REPORT INFORMATION
  Report Type: 
  Country: None (occurrence: None)
  Receive Date: 20100223
  Receipt Date: 20100209
  Transmission Date: 20100710
  Serious: Yes (Other)
  Sender: FDA-Public Use
  Company Number: US-ELI_LILLY_AND_COMPANY-US201002003674

PATIENT
  Sex: Female

DRUGS (9)
  1. FORTEO [Suspect]
     Indication: OSTEOPOROSIS
     Dosage: 20 UG, DAILY (1/D)
     Route: 065
     Dates: start: 20090101
  2. ABILIFY [Concomitant]
     Dosage: UNK, UNKNOWN
     Route: 065
  3. LEXAPRO [Concomitant]
     Dosage: UNK, UNKNOWN
     Route: 065
  4. LYRICA [Concomitant]
     Dosage: UNK, UNKNOWN
     Route: 065
  5. FUROSEMIDE [Concomitant]
     Dosage: UNK, UNKNOWN
     Route: 065
  6. NEXIUM [Concomitant]
     Dosage: UNK, UNKNOWN
     Route: 065
  7. LAMOTRIGINE [Concomitant]
     Dosage: UNK, UNKNOWN
     Route: 065
  8. TAGAMET [Concomitant]
     Dosage: UNK, UNKNOWN
     Route: 065
  9. XANAX [Concomitant]
     Dosage: UNK, UNKNOWN
     Route: 065

REACTIONS (3)
  - FOOT FRACTURE [None]
  - MEMORY IMPAIRMENT [None]
  - TRIGEMINAL NEURALGIA [None]
